FAERS Safety Report 7392488-1 (Version None)
Quarter: 2011Q2

REPORT INFORMATION
  Report Type: 
  Country: None (occurrence: None)
  Receive Date: 20110404
  Receipt Date: 20110324
  Transmission Date: 20111010
  Serious: Yes (Hospitalization)
  Sender: FDA-Public Use
  Company Number: US-ASTRAZENECA-2011SE17392

PATIENT
  Age: 73 Year
  Sex: Male

DRUGS (1)
  1. NEXIUM [Suspect]
     Route: 048

REACTIONS (6)
  - CARDIAC PACEMAKER INSERTION [None]
  - ANEURYSM [None]
  - CORONARY ARTERY BYPASS [None]
  - ERUCTATION [None]
  - BLADDER CANCER [None]
  - DYSPEPSIA [None]
